FAERS Safety Report 11811772 (Version 1)
Quarter: 2015Q4

REPORT INFORMATION
  Report Type: Spontaneous
  Country: None (occurrence: US)
  Receive Date: 20151208
  Receipt Date: 20151208
  Transmission Date: 20160305
  Serious: Yes (Death, Other)
  Sender: FDA-Public Use
  Company Number: US-MEDTRONIC-1045213

PATIENT
  Sex: Male

DRUGS (1)
  1. BACLOFEN UNKNOWN [Suspect]
     Active Substance: BACLOFEN
     Route: 037
     Dates: end: 20151130

REACTIONS (2)
  - Neoplasm malignant [Fatal]
  - Disease complication [Fatal]
